FAERS Safety Report 9431518 (Version 2)
Quarter: 2013Q3

REPORT INFORMATION
  Report Type: Spontaneous
  Country: US (occurrence: US)
  Receive Date: 20130730
  Receipt Date: 20130903
  Transmission Date: 20140515
  Serious: Yes (Other)
  Sender: FDA-Public Use
  Company Number: US-JNJFOC-20130711746

PATIENT
  Age: 59 Year
  Sex: Female

DRUGS (13)
  1. BENADRYL [Suspect]
     Indication: INSOMNIA
     Route: 048
     Dates: start: 20130714
  2. BENADRYL [Suspect]
     Indication: PRURITUS
     Route: 048
     Dates: start: 20130714
  3. BENADRYL [Suspect]
     Indication: RASH GENERALISED
     Route: 048
     Dates: start: 20130714
  4. BENADRYL [Suspect]
     Indication: URTICARIA
     Route: 048
     Dates: start: 20130714
  5. BENADRYL [Suspect]
     Indication: CHILLS
     Route: 048
     Dates: start: 20130714
  6. BENADRYL [Suspect]
     Indication: PYREXIA
     Route: 048
     Dates: start: 20130714
  7. INVOKANA [Suspect]
     Indication: PRODUCT USED FOR UNKNOWN INDICATION
     Route: 048
     Dates: start: 20130701, end: 20130714
  8. METOPROLOL SUCCINATE EXTENDED RELEASE [Concomitant]
     Indication: BLOOD PRESSURE
     Route: 065
     Dates: start: 2001
  9. LOSARTAN POTASSIUM [Concomitant]
     Indication: PRODUCT USED FOR UNKNOWN INDICATION
     Route: 065
     Dates: start: 2010
  10. EFFEXOR XR [Concomitant]
     Indication: PRODUCT USED FOR UNKNOWN INDICATION
     Dosage: 7-8 YEARS
     Route: 065
     Dates: start: 2006
  11. ASPIRIN [Concomitant]
     Indication: PRODUCT USED FOR UNKNOWN INDICATION
     Dosage: 5-6 YEARS
     Route: 065
     Dates: start: 2002
  12. FISH OIL [Concomitant]
     Indication: PRODUCT USED FOR UNKNOWN INDICATION
     Dosage: ABOUT 10 YEARS
     Route: 065
     Dates: start: 2000
  13. VITAMIN D [Concomitant]
     Indication: PRODUCT USED FOR UNKNOWN INDICATION
     Dosage: ABOUT 10 YEARS
     Route: 065

REACTIONS (3)
  - Urinary tract infection [Unknown]
  - Pruritus [Unknown]
  - Drug ineffective for unapproved indication [Unknown]
